FAERS Safety Report 18641316 (Version 1)
Quarter: 2020Q4

REPORT INFORMATION
  Report Type: Spontaneous
  Country: US (occurrence: US)
  Receive Date: 20201221
  Receipt Date: 20201221
  Transmission Date: 20210114
  Serious: No
  Sender: FDA-Public Use
  Company Number: US-ALLERGAN-2043034US

PATIENT
  Sex: Female

DRUGS (35)
  1. ESTRADIOL. [Concomitant]
     Active Substance: ESTRADIOL
  2. FISH OIL [Concomitant]
     Active Substance: FISH OIL
  3. OMEPRAZOLE. [Concomitant]
     Active Substance: OMEPRAZOLE
  4. CLOBETASOL PROPIONATE. [Concomitant]
     Active Substance: CLOBETASOL PROPIONATE
  5. METHYLPREDNISOLONE. [Concomitant]
     Active Substance: METHYLPREDNISOLONE
  6. OXYCODONE HYDROCHLORIDE. [Concomitant]
     Active Substance: OXYCODONE HYDROCHLORIDE
  7. VALIUM [Concomitant]
     Active Substance: DIAZEPAM
  8. EXTINA [Concomitant]
     Active Substance: KETOCONAZOLE
  9. OXYCODONE HYDROCHLORIDE. [Concomitant]
     Active Substance: OXYCODONE HYDROCHLORIDE
  10. DULOXETINE HYDROCHLORIDE. [Concomitant]
     Active Substance: DULOXETINE HYDROCHLORIDE
  11. FUROSEMIDE. [Concomitant]
     Active Substance: FUROSEMIDE
  12. CULTURELLE [Concomitant]
     Active Substance: LACTOBACILLUS RHAMNOSUS
  13. PRED FORTE [Concomitant]
     Active Substance: PREDNISOLONE ACETATE
  14. ZOVIRAX [Concomitant]
     Active Substance: ACYCLOVIR
  15. AMILORIDE [Concomitant]
     Active Substance: AMILORIDE
  16. ACTEMRA [Concomitant]
     Active Substance: TOCILIZUMAB
  17. LIDOCAINE VISCOUS [Concomitant]
     Active Substance: LIDOCAINE HYDROCHLORIDE
  18. NARCAN [Concomitant]
     Active Substance: NALOXONE HYDROCHLORIDE
  19. LAMICTAL [Concomitant]
     Active Substance: LAMOTRIGINE
  20. CARVEDILOL. [Concomitant]
     Active Substance: CARVEDILOL
  21. ONDANSETRON HYDROCHLORIDE. [Concomitant]
     Active Substance: ONDANSETRON HYDROCHLORIDE
  22. BYSTOLIC [Suspect]
     Active Substance: NEBIVOLOL HYDROCHLORIDE
     Indication: PRODUCT USED FOR UNKNOWN INDICATION
  23. IMURAN [Concomitant]
     Active Substance: AZATHIOPRINE
  24. HALOBETASOL PROPIONATE. [Concomitant]
     Active Substance: HALOBETASOL PROPIONATE
  25. LEVOTHYROXINE SODIUM. [Concomitant]
     Active Substance: LEVOTHYROXINE SODIUM
  26. ASPIRIN. [Concomitant]
     Active Substance: ASPIRIN
  27. CALCIUM +D [Concomitant]
     Active Substance: CALCIUM\VITAMIN D
  28. AMLACTIN [Concomitant]
     Active Substance: AMMONIUM LACTATE
  29. MELOXICAM. [Concomitant]
     Active Substance: MELOXICAM
  30. METFORMIN HYDROCHLORIDE. [Concomitant]
     Active Substance: METFORMIN HYDROCHLORIDE
  31. OXCARBAZEPINE. [Concomitant]
     Active Substance: OXCARBAZEPINE
  32. BACLOFEN. [Concomitant]
     Active Substance: BACLOFEN
  33. ZOFRAN [Concomitant]
     Active Substance: ONDANSETRON HYDROCHLORIDE
  34. VITAMIN D3 [Concomitant]
     Active Substance: CHOLECALCIFEROL
  35. DOXYCYCLINE MONOHYDRATE [Concomitant]
     Active Substance: DOXYCYCLINE

REACTIONS (2)
  - Dizziness [Unknown]
  - Chest discomfort [Unknown]
